FAERS Safety Report 20430193 (Version 1)
Quarter: 2022Q1

REPORT INFORMATION
  Report Type: Report from Study
  Country: FR (occurrence: FR)
  Receive Date: 20220204
  Receipt Date: 20220204
  Transmission Date: 20220424
  Serious: Yes (Other)
  Sender: FDA-Public Use
  Company Number: FR-SERVIER-S19013708

PATIENT

DRUGS (9)
  1. ONCASPAR [Suspect]
     Active Substance: PEGASPARGASE
     Indication: Acute lymphocytic leukaemia
     Dosage: 1500 IU, ON D8
     Route: 042
     Dates: start: 20170801, end: 20170801
  2. DEXAMETHASONE [Suspect]
     Active Substance: DEXAMETHASONE
     Indication: Acute lymphocytic leukaemia
     Dosage: 12 MG QD FROM D1 TO D5
     Route: 042
     Dates: start: 20170725, end: 20170729
  3. DEXAMETHASONE [Suspect]
     Active Substance: DEXAMETHASONE
     Dosage: 3 MG ON D6
     Route: 042
     Dates: start: 20170801
  4. CYTARABINE [Suspect]
     Active Substance: CYTARABINE
     Indication: Acute lymphocytic leukaemia
     Dosage: 2400 MG ON D1, D2
     Route: 042
     Dates: start: 20170725, end: 20170726
  5. CYTARABINE [Suspect]
     Active Substance: CYTARABINE
     Dosage: 25 MG ON D5
     Route: 037
     Dates: start: 20170729
  6. ETOPOSIDE [Suspect]
     Active Substance: ETOPOSIDE
     Indication: Acute lymphocytic leukaemia
     Dosage: 90 MG ON D3, D4, D5
     Route: 042
     Dates: start: 20170727, end: 20170729
  7. METHOTREXATE [Suspect]
     Active Substance: METHOTREXATE
     Indication: Acute lymphocytic leukaemia
     Dosage: 10 MG ON D5
     Route: 037
     Dates: start: 20170729
  8. HYDROCORTISONE [Suspect]
     Active Substance: HYDROCORTISONE
     Indication: Acute lymphocytic leukaemia
     Dosage: 12.5 MG ON D5
     Route: 037
     Dates: start: 20170729
  9. MITOXANTRONE HYDROCHLORIDE [Suspect]
     Active Substance: MITOXANTRONE HYDROCHLORIDE
     Indication: Acute lymphocytic leukaemia
     Dosage: 5 MG D3, D4
     Route: 042
     Dates: start: 20170727, end: 20170728

REACTIONS (1)
  - Streptococcal sepsis [Recovered/Resolved]

NARRATIVE: CASE EVENT DATE: 20170807
